FAERS Safety Report 7476760-2 (Version None)
Quarter: 2011Q2

REPORT INFORMATION
  Report Type: 
  Country: None (occurrence: None)
  Receive Date: 20110512
  Receipt Date: 20110503
  Transmission Date: 20111010
  Serious: Yes (Other)
  Sender: FDA-Public Use
  Company Number: DE-CEPHALON-2011000010

PATIENT
  Age: 86 Year
  Sex: Female

DRUGS (3)
  1. BORTEZOMIB [Concomitant]
  2. TREANDA [Suspect]
     Indication: MULTIPLE MYELOMA
  3. MELPHALAN [Concomitant]

REACTIONS (5)
  - SWELLING [None]
  - GENERALISED ERYTHEMA [None]
  - FEELING HOT [None]
  - BURNING SENSATION [None]
  - RASH PAPULAR [None]
